FAERS Safety Report 4772047-7 (Version None)
Quarter: 2005Q3

REPORT INFORMATION
  Report Type: 
  Country: None (occurrence: None)
  Receive Date: 20050916
  Receipt Date: 20050905
  Transmission Date: 20060218
  Serious: Yes (Other)
  Sender: FDA-Public Use
  Company Number: 2005123781

PATIENT
  Age: 42 Year
  Sex: Female
  Weight: 73.9363 kg

DRUGS (2)
  1. SUDAFED NON-DRYING SINUS (PSEUDOEPHDRINE, GUAIFENESIN) [Suspect]
     Indication: SINUS HEADACHE
     Dosage: 1 LIQUIDCAP AS NEEDED, ORAL
     Route: 048
  2. THYROID TAB [Concomitant]

REACTIONS (1)
  - THYROID GLAND CANCER [None]
